FAERS Safety Report 6821842-9 (Version None)
Quarter: 2010Q3

REPORT INFORMATION
  Report Type: 
  Country: None (occurrence: None)
  Receive Date: 20100708
  Receipt Date: 20100629
  Transmission Date: 20110219
  Serious: Yes (Hospitalization)
  Sender: FDA-Public Use
  Company Number: US-BIOGENIDEC-2010BI021946

PATIENT
  Age: 40 Year
  Sex: Female

DRUGS (4)
  1. AVONEX [Suspect]
     Indication: MULTIPLE SCLEROSIS
     Route: 030
     Dates: start: 20080203
  2. AVONEX [Suspect]
     Route: 030
     Dates: start: 20060504, end: 20071105
  3. CLOBEX (CLOBETASOL) SPRAY [Concomitant]
     Indication: PSORIASIS
     Dates: end: 20100617
  4. CLOBETASOL TOPICAL SOLUTION (CLOBETASOL PROPIONATE) [Concomitant]
     Indication: PSORIASIS
     Dates: end: 20100617

REACTIONS (6)
  - BLOOD CREATININE INCREASED [None]
  - CELLULITIS [None]
  - OEDEMA PERIPHERAL [None]
  - PSORIASIS [None]
  - SKIN EXFOLIATION [None]
  - STEROID WITHDRAWAL SYNDROME [None]
